FAERS Safety Report 9933722 (Version 2)
Quarter: 2014Q1

REPORT INFORMATION
  Report Type: Spontaneous
  Country: US (occurrence: US)
  Receive Date: 20140228
  Receipt Date: 20140228
  Transmission Date: 20141002
  Serious: No
  Sender: FDA-Public Use
  Company Number: US-MYLANLABS-2013S1011772

PATIENT
  Age: 47 Year
  Sex: Female
  Weight: 83.92 kg

DRUGS (2)
  1. AMNESTEEM CAPSULES [Suspect]
     Indication: ACNE CYSTIC
     Route: 048
     Dates: start: 201304
  2. AMLODIPINE [Concomitant]
     Indication: BLOOD PRESSURE INCREASED

REACTIONS (3)
  - Dermatitis acneiform [Recovering/Resolving]
  - Impaired healing [Recovering/Resolving]
  - Pain [Recovering/Resolving]
